FAERS Safety Report 21747239 (Version 1)
Quarter: 2022Q4

REPORT INFORMATION
  Report Type: Report from Study
  Country: JP (occurrence: JP)
  Receive Date: 20221219
  Receipt Date: 20221219
  Transmission Date: 20230112
  Serious: Yes (Hospitalization)
  Sender: FDA-Public Use
  Company Number: JP-ASTELLAS-2022JP017164

PATIENT
  Age: 84 Year
  Sex: Female
  Weight: 45.6 kg

DRUGS (8)
  1. ENFORTUMAB VEDOTIN [Suspect]
     Active Substance: ENFORTUMAB VEDOTIN
     Indication: Transitional cell carcinoma
     Dosage: 1.25 MG/KG, TWICE EVERY 3 WEEKS (DAY 1 AND DAY 8)
     Route: 065
     Dates: start: 20220906
  2. PEMBROLIZUMAB [Suspect]
     Active Substance: PEMBROLIZUMAB
     Indication: Transitional cell carcinoma
     Route: 065
     Dates: start: 20220906
  3. OLOPATADINE HYDROCHLORIDE [Concomitant]
     Active Substance: OLOPATADINE HYDROCHLORIDE
     Indication: Rash erythematous
     Dosage: AS APPROPRIATE, AS NEEDED
     Route: 048
     Dates: start: 20220916
  4. GLYCOSAMINOGLYCANS [Concomitant]
     Active Substance: GLYCOSAMINOGLYCANS
     Indication: Rash erythematous
     Dosage: AS APPROPRIATE, AS NEEDED
     Route: 062
     Dates: start: 20220916
  5. CLOBETASOL [Concomitant]
     Active Substance: CLOBETASOL
     Indication: Rash erythematous
     Dosage: AS APPROPRIATE, AS NEEDED
     Route: 050
     Dates: start: 20220916
  6. CORTRIL [Concomitant]
     Active Substance: HYDROCORTISONE
     Indication: Hypopituitarism
     Dosage: MORNING 1 TABLET, EVENING 0.5 TABLETS, TWICE DAILY
     Route: 048
     Dates: start: 20221017
  7. ZINC [Concomitant]
     Active Substance: ZINC
     Indication: Taste disorder
     Route: 048
     Dates: start: 20221101
  8. EDOXABAN TOSYLATE [Concomitant]
     Active Substance: EDOXABAN TOSYLATE
     Indication: Thrombosis
     Route: 048
     Dates: start: 20221118

REACTIONS (1)
  - Adrenal insufficiency [Not Recovered/Not Resolved]

NARRATIVE: CASE EVENT DATE: 20221121
